FAERS Safety Report 6874963-9 (Version None)
Quarter: 2010Q3

REPORT INFORMATION
  Report Type: 
  Country: None (occurrence: None)
  Receive Date: 20100723
  Receipt Date: 20100713
  Transmission Date: 20110219
  Serious: Yes (Life-Threatening, Hospitalization)
  Sender: FDA-Public Use
  Company Number: 009153

PATIENT
  Age: 85 Year
  Sex: Female
  Weight: 44 kg

DRUGS (8)
  1. PLETAAL (CILOSTAZOL) TABLET, 50 MG [Suspect]
     Indication: HYPOAESTHESIA
     Dosage: 100 MG, BID
     Route: 048
     Dates: start: 20080724, end: 20100310
  2. MEXITIL [Concomitant]
  3. TANATRIL (IMIDAPRIL HYDROCHLORIDE) [Concomitant]
  4. OMEPRAZOLE [Concomitant]
  5. PREDNISOLONE [Concomitant]
  6. PURSENNID (SENNOSIDE) [Concomitant]
  7. ENALAPRIL MALEATE [Concomitant]
  8. RABEPRAZOLE SODIUM [Concomitant]

REACTIONS (6)
  - CHEST DISCOMFORT [None]
  - CIRCULATORY COLLAPSE [None]
  - FALL [None]
  - LOSS OF CONSCIOUSNESS [None]
  - SYNCOPE [None]
  - VENTRICULAR TACHYCARDIA [None]
